FAERS Safety Report 22224237 (Version 3)
Quarter: 2023Q2

REPORT INFORMATION
  Report Type: Spontaneous
  Country: US (occurrence: US)
  Receive Date: 20230418
  Receipt Date: 20230519
  Transmission Date: 20230722
  Serious: No
  Sender: FDA-Public Use
  Company Number: US-LUNDBECK-DKLU3060669

PATIENT
  Age: 56 Year
  Sex: Female

DRUGS (2)
  1. VYEPTI [Suspect]
     Active Substance: EPTINEZUMAB-JJMR
     Indication: Migraine
     Route: 041
     Dates: start: 20221113
  2. VYEPTI [Suspect]
     Active Substance: EPTINEZUMAB-JJMR
     Route: 041
     Dates: start: 20230205

REACTIONS (4)
  - Therapeutic product effect decreased [Not Recovered/Not Resolved]
  - Throat irritation [Recovered/Resolved]
  - Gastrointestinal disorder [Unknown]
  - Drug ineffective [Unknown]
